FAERS Safety Report 7311199-1 (Version None)
Quarter: 2011Q1

REPORT INFORMATION
  Report Type: 
  Country: None (occurrence: None)
  Receive Date: 20110224
  Receipt Date: 20100624
  Transmission Date: 20110831
  Serious: Yes (Hospitalization, Other)
  Sender: FDA-Public Use
  Company Number: US-BAYER-200943587NA

PATIENT
  Sex: Female
  Weight: 129.25 kg

DRUGS (9)
  1. YAZ [Suspect]
     Indication: ORAL CONTRACEPTION
     Dosage: UNK
     Dates: start: 20080211, end: 20090111
  2. MIRALAX [Concomitant]
  3. CLARITIN [Concomitant]
     Indication: MULTIPLE ALLERGIES
     Dosage: UNK UNK, BIW
  4. YAZ [Suspect]
     Indication: PREMENSTRUAL SYNDROME
  5. ADVIL LIQUI-GELS [Concomitant]
     Dosage: UNK UNK, PRN
  6. ZYRTEC [Concomitant]
     Indication: MULTIPLE ALLERGIES
     Dosage: UNK UNK, BIW
  7. YAZ [Suspect]
  8. FIBERCON [Concomitant]
  9. EXLAX [PHENOLPHTHALEIN] [Concomitant]
     Indication: CONSTIPATION

REACTIONS (6)
  - LIBIDO DECREASED [None]
  - CHOLECYSTITIS [None]
  - VOMITING [None]
  - CHOLELITHIASIS [None]
  - NAUSEA [None]
  - PANCREATITIS [None]
